FAERS Safety Report 25845783 (Version 1)
Quarter: 2025Q3

REPORT INFORMATION
  Report Type: Other
  Country: RU (occurrence: RU)
  Receive Date: 20250925
  Receipt Date: 20250925
  Transmission Date: 20251020
  Serious: Yes (Hospitalization, Other)
  Sender: RENATA LIMITED
  Company Number: RU-Renata Limited-2185272

PATIENT
  Age: 83 Year
  Sex: Female

DRUGS (10)
  1. ROSUVASTATIN CALCIUM [Suspect]
     Active Substance: ROSUVASTATIN CALCIUM
     Indication: Product used for unknown indication
  2. ATORVASTATIN CALCIUM [Interacting]
     Active Substance: ATORVASTATIN CALCIUM
  3. PERINDOPRIL ERBUMINE [Concomitant]
     Active Substance: PERINDOPRIL ERBUMINE
  4. ASPIRIN [Concomitant]
     Active Substance: ASPIRIN
  5. CYANOCOBALAMIN [Concomitant]
     Active Substance: CYANOCOBALAMIN
  6. MESALAMINE [Concomitant]
     Active Substance: MESALAMINE
  7. SPIRONOLACTONE [Concomitant]
     Active Substance: SPIRONOLACTONE
  8. BISOPROLOL. [Concomitant]
  9. INDAPAMIDE [Concomitant]
     Active Substance: INDAPAMIDE
  10. TICAGRELOR [Interacting]
     Active Substance: TICAGRELOR

REACTIONS (5)
  - Acute kidney injury [Unknown]
  - Intentional product misuse [Unknown]
  - Drug interaction [Unknown]
  - Drug-induced liver injury [Unknown]
  - Rhabdomyolysis [Unknown]
